FAERS Safety Report 5953404-X (Version None)
Quarter: 2008Q4

REPORT INFORMATION
  Report Type: 
  Country: None (occurrence: None)
  Receive Date: 20081114
  Receipt Date: 20081103
  Transmission Date: 20090506
  Serious: Yes (Other)
  Sender: FDA-Public Use
  Company Number: US-MERCK-0809USA00099

PATIENT
  Sex: Male

DRUGS (6)
  1. VASOTEC [Suspect]
     Route: 048
  2. LIPITOR [Suspect]
     Route: 065
  3. NORVASC [Suspect]
     Route: 065
  4. ZOCOR [Suspect]
     Route: 048
  5. YEAST [Suspect]
     Indication: BLOOD CHOLESTEROL
     Route: 065
  6. [THERAPY UNSPECIFIED] [Suspect]
     Route: 065

REACTIONS (4)
  - ASTHENIA [None]
  - NEUROPATHY PERIPHERAL [None]
  - PAIN IN EXTREMITY [None]
  - TYPE 1 DIABETES MELLITUS [None]
